FAERS Safety Report 23421683 (Version 1)
Quarter: 2024Q1

REPORT INFORMATION
  Report Type: Spontaneous
  Country: US (occurrence: US)
  Receive Date: 20240119
  Receipt Date: 20240119
  Transmission Date: 20240410
  Serious: Yes (Other)
  Sender: FDA-Public Use
  Company Number: US-EPICPHARMA-US-2024EPCLIT00026

PATIENT
  Age: 42 Year
  Sex: Male

DRUGS (2)
  1. MOXIFLOXACIN HYDROCHLORIDE [Suspect]
     Active Substance: MOXIFLOXACIN HYDROCHLORIDE\MOXIFLOXACIN HYDROCHLORIDE MONOHYDRATE
     Indication: Infection prophylaxis
     Dosage: 0.2 ML OF UNDILUTED 0.5% PRESERVATIVE
  2. MOXIFLOXACIN HYDROCHLORIDE [Suspect]
     Active Substance: MOXIFLOXACIN HYDROCHLORIDE\MOXIFLOXACIN HYDROCHLORIDE MONOHYDRATE

REACTIONS (4)
  - Corneal decompensation [Recovering/Resolving]
  - Toxic anterior segment syndrome [Recovering/Resolving]
  - Corneal oedema [Recovering/Resolving]
  - Off label use [Unknown]
